FAERS Safety Report 8888167 (Version 1)
Quarter: 2012Q4

REPORT INFORMATION
  Report Type: 
  Country: US (occurrence: US)
  Receive Date: 20121106
  Receipt Date: 20121106
  Transmission Date: 20130627
  Serious: No
  Sender: FDA-Public Use
  Company Number: US-TEVA-337751USA

PATIENT
  Sex: Female

DRUGS (1)
  1. PROAIR HFA [Suspect]
     Dosage: 2 inhalations q 6 hours as needed
     Dates: start: 20120501

REACTIONS (1)
  - Drug ineffective [Unknown]
